FAERS Safety Report 20561522 (Version 2)
Quarter: 2022Q1

REPORT INFORMATION
  Report Type: Report from Study
  Country: AU (occurrence: None)
  Receive Date: 20220307
  Receipt Date: 20220314
  Transmission Date: 20220423
  Serious: Yes (Hospitalization)
  Sender: FDA-Public Use
  Company Number: AU-ROCHE-3039491

PATIENT
  Age: 57 Year
  Sex: Male
  Weight: 96.9 kg

DRUGS (20)
  1. GLOFITAMAB [Suspect]
     Active Substance: GLOFITAMAB
     Indication: Diffuse large B-cell lymphoma
     Dosage: DATE OF LAST DOSE GIVEN PRIOR TO SAE/AE: 16/FEB/2022
     Route: 042
     Dates: start: 20220209
  2. RITUXIMAB [Suspect]
     Active Substance: RITUXIMAB
     Indication: Diffuse large B-cell lymphoma
     Dosage: DATE OF LAST DOSE GIVEN PRIOR TO SAE/AE: 23/FEB/2022
     Route: 041
     Dates: start: 20220202
  3. CYCLOPHOSPHAMIDE [Suspect]
     Active Substance: CYCLOPHOSPHAMIDE
     Indication: Diffuse large B-cell lymphoma
     Dosage: DATE OF LAST DOSE GIVEN PRIOR TO SAE/AE: 23/FEB/2022
     Route: 042
     Dates: start: 20220202
  4. VINCRISTINE [Suspect]
     Active Substance: VINCRISTINE
     Indication: Diffuse large B-cell lymphoma
     Dosage: DATE OF LAST DOSE GIVEN PRIOR TO SAE/AE: 23/FEB/2022
     Route: 042
     Dates: start: 20220202
  5. DOXORUBICIN [Suspect]
     Active Substance: DOXORUBICIN
     Indication: Diffuse large B-cell lymphoma
     Dosage: DATE OF LAST DOSE GIVEN PRIOR TO SAE/AE: 23/FEB/2022
     Route: 042
     Dates: start: 20220202
  6. PREDNISOLONE [Suspect]
     Active Substance: PREDNISOLONE
     Indication: Diffuse large B-cell lymphoma
     Route: 048
     Dates: start: 20220202
  7. DEXAMETHASONE [Suspect]
     Active Substance: DEXAMETHASONE
     Indication: Product used for unknown indication
     Route: 065
  8. AMLODIPINE [Concomitant]
     Active Substance: AMLODIPINE BESYLATE
     Dates: start: 2012
  9. VALSARTAN [Concomitant]
     Active Substance: VALSARTAN
     Dates: start: 2012
  10. PANTOPRAZOLE [Concomitant]
     Active Substance: PANTOPRAZOLE
     Dates: start: 2012
  11. PRAZOSIN [Concomitant]
     Active Substance: PRAZOSIN
     Dates: start: 2012
  12. METFORMIN HYDROCHLORIDE\SITAGLIPTIN PHOSPHATE [Concomitant]
     Active Substance: METFORMIN HYDROCHLORIDE\SITAGLIPTIN PHOSPHATE
     Dosage: 50 MG/1GM
     Dates: start: 2012
  13. INDAPAMIDE [Concomitant]
     Active Substance: INDAPAMIDE
     Dates: start: 2012
  14. PREDNISOLONE [Concomitant]
     Active Substance: PREDNISOLONE
     Dates: start: 2012
  15. VALACYCLOVIR [Concomitant]
     Active Substance: VALACYCLOVIR HYDROCHLORIDE
     Dates: start: 2012
  16. ALLOPURINOL [Concomitant]
     Active Substance: ALLOPURINOL
     Dates: start: 2012
  17. GLUCOZIDE (AUSTRALIA) [Concomitant]
     Dates: start: 2012
  18. NALOXONE HYDROCHLORIDE\OXYCODONE HYDROCHLORIDE [Concomitant]
     Active Substance: NALOXONE HYDROCHLORIDE\OXYCODONE HYDROCHLORIDE
     Dosage: 10/5 MG
  19. POTASSIUM [Concomitant]
     Active Substance: POTASSIUM
  20. MAGNESIUM [Concomitant]
     Active Substance: MAGNESIUM

REACTIONS (2)
  - Myocardial ischaemia [Recovering/Resolving]
  - Acute myocardial infarction [Recovering/Resolving]

NARRATIVE: CASE EVENT DATE: 20220226
